FAERS Safety Report 9264405 (Version 1)
Quarter: 2013Q2

REPORT INFORMATION
  Report Type: Spontaneous
  Country: DE (occurrence: DE)
  Receive Date: 20130430
  Receipt Date: 20130430
  Transmission Date: 20140414
  Serious: Yes (Hospitalization)
  Sender: FDA-Public Use
  Company Number: DE-B.I. PHARMACEUTICALS,INC./RIDGEFIELD-2013-DE-01220DE

PATIENT
  Age: 88 Year
  Sex: Female

DRUGS (7)
  1. PRADAXA [Suspect]
     Indication: ATRIAL FIBRILLATION
     Dosage: 220 MG
     Dates: start: 20130315
  2. OMEP [Concomitant]
  3. L-THYROXIN [Concomitant]
  4. LERCANIDIPIN [Concomitant]
  5. PRAMIPEXOL [Concomitant]
  6. CLINDAMYCIN [Concomitant]
  7. ALENDRONS?URE [Concomitant]

REACTIONS (1)
  - Soft tissue necrosis [Not Recovered/Not Resolved]
